FAERS Safety Report 9850204 (Version 1)
Quarter: 2014Q1

REPORT INFORMATION
  Report Type: Spontaneous
  Country: US (occurrence: None)
  Receive Date: 20140124
  Receipt Date: 20140124
  Transmission Date: 20141002
  Serious: Yes (Other)
  Sender: FDA-Public Use
  Company Number: None

PATIENT
  Age: 62 Year
  Sex: Male
  Weight: 83.18 kg

DRUGS (1)
  1. FLEBOGAMMA (IMMUNE GLOBULIN INTRAVENOUS (HUMAN) 10% LIQUID) [Suspect]
     Indication: IMMUNODEFICIENCY COMMON VARIABLE
     Dosage: 40GM, Q28DAYS, IV
     Route: 042
     Dates: start: 20131213, end: 20140113

REACTIONS (8)
  - Myalgia [None]
  - Muscle twitching [None]
  - Chills [None]
  - Headache [None]
  - Pain [None]
  - Blood pressure increased [None]
  - Heart rate decreased [None]
  - Infusion related reaction [None]
